FAERS Safety Report 12559005 (Version 3)
Quarter: 2016Q3

REPORT INFORMATION
  Report Type: Spontaneous
  Country: JP (occurrence: JP)
  Receive Date: 20160715
  Receipt Date: 20160810
  Transmission Date: 20161109
  Serious: Yes (Other)
  Sender: FDA-Public Use
  Company Number: JP-009507513-1607JPN003900

PATIENT

DRUGS (2)
  1. PEGINTRON [Suspect]
     Active Substance: PEGINTERFERON ALFA-2B
     Indication: CHOLANGIOCARCINOMA
     Dosage: 50-100 MICROGRAM, ONCE WEEKLY (DAILY DOSE UNKNOWN)
     Route: 058
  2. FLUOROURACIL. [Suspect]
     Active Substance: FLUOROURACIL
     Indication: CHOLANGIOCARCINOMA
     Dosage: 250 MG, DAILY (5 CONSECUTIVE DAYS TREATMENT AND 2 DAYS OFF, DIVIDED DOSE FREQUENCY UNKNOWN)
     Route: 025

REACTIONS (3)
  - Bone marrow failure [Unknown]
  - Nausea [Unknown]
  - Decreased appetite [Unknown]
